FAERS Safety Report 12827495 (Version 1)
Quarter: 2016Q4

REPORT INFORMATION
  Report Type: Spontaneous
  Country: US (occurrence: US)
  Receive Date: 20161007
  Receipt Date: 20161007
  Transmission Date: 20170207
  Serious: No
  Sender: FDA-Public Use
  Company Number: US-WATSON-2015-28641

PATIENT
  Sex: Male

DRUGS (1)
  1. FENTANYL-25 (WATSON LABORATORIES) [Suspect]
     Active Substance: FENTANYL
     Indication: PRODUCT USED FOR UNKNOWN INDICATION
     Dosage: 25 MCG/HR, UNK
     Route: 062
     Dates: start: 201511

REACTIONS (6)
  - Withdrawal syndrome [Unknown]
  - Hyperhidrosis [Unknown]
  - Application site pain [Unknown]
  - Application site erythema [Unknown]
  - Pain [Unknown]
  - Device use error [Unknown]
